FAERS Safety Report 13688958 (Version 1)
Quarter: 2017Q2

REPORT INFORMATION
  Report Type: Spontaneous
  Country: US (occurrence: US)
  Receive Date: 20170626
  Receipt Date: 20170626
  Transmission Date: 20170830
  Serious: Yes (Other)
  Sender: FDA-Public Use
  Company Number: US-TEVA-780948USA

PATIENT
  Age: 61 Year
  Sex: Male

DRUGS (1)
  1. CABERGOLINE. [Suspect]
     Active Substance: CABERGOLINE
     Indication: PROLACTIN-PRODUCING PITUITARY TUMOUR
     Route: 065

REACTIONS (3)
  - Carotid aneurysm rupture [Recovered/Resolved]
  - IIIrd nerve paralysis [Recovered/Resolved]
  - Subarachnoid haemorrhage [Recovered/Resolved]
